FAERS Safety Report 4331244-5 (Version None)
Quarter: 2004Q2

REPORT INFORMATION
  Report Type: 
  Country: None (occurrence: None)
  Receive Date: 20040402
  Receipt Date: 20040402
  Transmission Date: 20050107
  Serious: Yes (Other)
  Sender: FDA-Public Use
  Company Number: None

PATIENT
  Sex: Female

DRUGS (6)
  1. DETROL LA [Suspect]
     Indication: INCONTINENCE
     Dosage: 1 PER DAY
     Dates: start: 20040127, end: 20040321
  2. DETROL LA [Suspect]
     Indication: MICTURITION URGENCY
     Dosage: 1 PER DAY
     Dates: start: 20040127, end: 20040321
  3. CARDIZEM [Concomitant]
  4. METFORMIN [Concomitant]
  5. TAMOXIFEN CITRATE [Concomitant]
  6. A THYROID MEDICINE [Concomitant]

REACTIONS (5)
  - ABNORMAL BEHAVIOUR [None]
  - ANXIETY [None]
  - DISTURBANCE IN ATTENTION [None]
  - DRY MOUTH [None]
  - MENTAL DISORDER [None]
